FAERS Safety Report 11803841 (Version 1)
Quarter: 2015Q4

REPORT INFORMATION
  Report Type: Report from Study
  Country: DK (occurrence: DK)
  Receive Date: 20151204
  Receipt Date: 20151204
  Transmission Date: 20160305
  Serious: Yes (Other)
  Sender: FDA-Public Use
  Company Number: PHHY2015DK156929

PATIENT
  Age: 24 Year
  Sex: Female

DRUGS (1)
  1. GILENYA [Suspect]
     Active Substance: FINGOLIMOD HYDROCHLORIDE
     Indication: MULTIPLE SCLEROSIS
     Dosage: 0.5 MG, QD
     Route: 048
     Dates: start: 20120703

REACTIONS (4)
  - Sinusitis [Recovered/Resolved]
  - Ligament disorder [Unknown]
  - Chest pain [Recovered/Resolved]
  - Ligament rupture [Unknown]

NARRATIVE: CASE EVENT DATE: 20140620
